FAERS Safety Report 12313828 (Version 1)
Quarter: 2016Q2

REPORT INFORMATION
  Report Type: Spontaneous
  Country: US (occurrence: US)
  Receive Date: 20160428
  Receipt Date: 20160428
  Transmission Date: 20160815
  Serious: No
  Sender: FDA-Public Use
  Company Number: US-BAUSCH-BL-2016-004781

PATIENT

DRUGS (1)
  1. ZYCLARA [Suspect]
     Active Substance: IMIQUIMOD
     Indication: PRODUCT USED FOR UNKNOWN INDICATION
     Route: 065

REACTIONS (2)
  - Drug dose omission [Unknown]
  - No adverse event [Unknown]
